FAERS Safety Report 8025878-4 (Version None)
Quarter: 2012Q1

REPORT INFORMATION
  Report Type: 
  Country: None (occurrence: None)
  Receive Date: 20120105
  Receipt Date: 20120103
  Transmission Date: 20120608
  Serious: Yes (Hospitalization)
  Sender: FDA-Public Use
  Company Number: SE-ROCHE-1027501

PATIENT
  Age: 33 Year
  Sex: Female

DRUGS (3)
  1. DESOGESTREL AND ETHINYL ESTRADIOL [Concomitant]
     Dosage: 75/UG
     Dates: start: 20090101
  2. VEMURAFENIB [Suspect]
     Indication: METASTATIC MALIGNANT MELANOMA
     Route: 048
     Dates: start: 20110519
  3. PARACETAMOL [Concomitant]
     Dates: start: 20111017

REACTIONS (1)
  - INTRACRANIAL TUMOUR HAEMORRHAGE [None]
